FAERS Safety Report 19021092 (Version 1)
Quarter: 2021Q1

REPORT INFORMATION
  Report Type: Report from Study
  Country: GB (occurrence: GB)
  Receive Date: 20210317
  Receipt Date: 20210317
  Transmission Date: 20210420
  Serious: Yes (Hospitalization)
  Sender: FDA-Public Use
  Company Number: GB-BAYER-2021-102989

PATIENT
  Age: 74 Year
  Sex: Male
  Weight: 99 kg

DRUGS (5)
  1. CRYOPRECIPITATE [Concomitant]
     Active Substance: CRYOPRECIPITATED ANTIHEMOPHILIC FACTOR (HUMAN)
     Indication: TRANSFUSION
     Dosage: 400
  2. RED BLOOD CELLS [Concomitant]
     Active Substance: HUMAN RED BLOOD CELL
     Indication: PACKED RED BLOOD CELL TRANSFUSION
     Dosage: 572
     Route: 065
  3. PLATELETS [Concomitant]
     Active Substance: HUMAN PLATELET, ALLOGENIC
     Indication: PLATELET TRANSFUSION
     Dosage: 5212
     Route: 065
  4. HEPARIN [Concomitant]
     Active Substance: HEPARIN SODIUM
     Indication: ANTICOAGULANT THERAPY
     Dosage: TOTAL HEPARIN DOSE 60000
  5. APROTININ 10,000 KIU/ML INJECTION BP (APROTININ) [Suspect]
     Active Substance: APROTININ
     Indication: HEART VALVE REPLACEMENT
     Dosage: 500 MILLILITRE EVERY 1 DAY(S) LOADING DOSE 2 MILLION KIU PUMP PRIMING DOSE 3 MILLION KIU CONTINUOUS

REACTIONS (3)
  - Blood creatinine increased [Recovering/Resolving]
  - Product use in unapproved indication [Unknown]
  - Off label use [Unknown]

NARRATIVE: CASE EVENT DATE: 20190504
